FAERS Safety Report 5051470-X (Version None)
Quarter: 2006Q3

REPORT INFORMATION
  Report Type: 
  Country: None (occurrence: None)
  Receive Date: 20060714
  Receipt Date: 20060705
  Transmission Date: 20061208
  Serious: Yes (Other)
  Sender: FDA-Public Use
  Company Number: 2006UW14199

PATIENT
  Age: 56 Year
  Sex: Female
  Weight: 131.5 kg

DRUGS (3)
  1. MERREM [Suspect]
     Indication: POSTOPERATIVE WOUND INFECTION
     Route: 042
     Dates: start: 20060704
  2. VANCOMYCIN [Concomitant]
     Indication: POSTOPERATIVE WOUND INFECTION
     Route: 042
     Dates: start: 20060704
  3. GENTAMICIN [Concomitant]
     Indication: POSTOPERATIVE WOUND INFECTION
     Route: 042
     Dates: start: 20050624

REACTIONS (2)
  - CATHETER RELATED COMPLICATION [None]
  - INTRAVENOUS CATHETER MANAGEMENT [None]
